FAERS Safety Report 4574519-7 (Version None)
Quarter: 2005Q1

REPORT INFORMATION
  Report Type: 
  Country: None (occurrence: None)
  Receive Date: 20050208
  Receipt Date: 20030604
  Transmission Date: 20050727
  Serious: Yes (Other)
  Sender: FDA-Public Use
  Company Number: US-GLAXOSMITHKLINE-A0411019A

PATIENT
  Age: 45 Year
  Sex: Male

DRUGS (6)
  1. PAXIL [Suspect]
     Indication: DEPRESSION
     Dosage: 40MG TWICE PER DAY
     Route: 048
     Dates: start: 19960101, end: 20030101
  2. PAXIL CR [Suspect]
     Indication: ANXIETY
     Dosage: 25MG PER DAY
     Route: 048
     Dates: start: 20030901
  3. WELLBUTRIN XL [Concomitant]
     Indication: DEPRESSION
     Dosage: 150MG PER DAY
     Route: 048
     Dates: start: 20040101, end: 20040101
  4. LEXAPRO [Concomitant]
     Indication: DEPRESSION
     Route: 048
     Dates: start: 20030901, end: 20040201
  5. XANAX [Concomitant]
     Indication: ANXIETY
     Route: 048
  6. ATIVAN [Concomitant]
     Indication: ANXIETY
     Route: 048

REACTIONS (25)
  - ABNORMAL DREAMS [None]
  - AGITATION [None]
  - ANOREXIA [None]
  - ASTHENIA [None]
  - DEPENDENCE [None]
  - DISORIENTATION [None]
  - DIZZINESS [None]
  - DRUG WITHDRAWAL SYNDROME [None]
  - EAR DISCOMFORT [None]
  - EYE PAIN [None]
  - FATIGUE [None]
  - GASTROINTESTINAL DISORDER [None]
  - HEADACHE [None]
  - HEART RATE INCREASED [None]
  - LETHARGY [None]
  - MUSCLE TIGHTNESS [None]
  - NAUSEA [None]
  - NERVOUSNESS [None]
  - NIGHTMARE [None]
  - OVERDOSE [None]
  - PAIN OF SKIN [None]
  - SUICIDAL IDEATION [None]
  - THROAT TIGHTNESS [None]
  - TINNITUS [None]
  - WEIGHT INCREASED [None]
